FAERS Safety Report 8364913-0 (Version None)
Quarter: 2012Q2

REPORT INFORMATION
  Report Type: 
  Country: None (occurrence: None)
  Receive Date: 20120516
  Receipt Date: 20120510
  Transmission Date: 20120825
  Serious: Yes (Life-Threatening, Other)
  Sender: FDA-Public Use
  Company Number: US-ASTRAZENECA-2012SE30491

PATIENT
  Age: 54 Year
  Sex: Male

DRUGS (3)
  1. PREVACID 24 HR [Concomitant]
  2. NEXIUM [Suspect]
     Route: 048
  3. NEXIUM [Suspect]
     Route: 048

REACTIONS (9)
  - CARDIAC ARREST [None]
  - ULCER HAEMORRHAGE [None]
  - PNEUMONIA ASPIRATION [None]
  - APPARENT DEATH [None]
  - OESOPHAGEAL HAEMORRHAGE [None]
  - RESPIRATORY ARREST [None]
  - HAEMORRHAGE [None]
  - HERNIA [None]
  - GASTROOESOPHAGEAL REFLUX DISEASE [None]
